FAERS Safety Report 8553424 (Version 21)
Quarter: 2014Q2

REPORT INFORMATION
  Report Type: Spontaneous
  Country: US (occurrence: US)
  Receive Date: 20120509
  Receipt Date: 20140617
  Transmission Date: 20141212
  Serious: Yes (Other)
  Sender: FDA-Public Use
  Company Number: PHEH2012US009658

PATIENT
  Age: 52 Year
  Sex: Female

DRUGS (4)
  1. ZOMETA [Suspect]
     Indication: PLASMA CELL MYELOMA
     Route: 041
  2. PREDNISONE [Concomitant]
  3. REVLIMID [Concomitant]
  4. LEVAQUIN [Concomitant]

REACTIONS (141)
  - Osteonecrosis of jaw [Unknown]
  - Pain [Unknown]
  - Infection [Unknown]
  - Deformity [Unknown]
  - Emotional distress [Unknown]
  - Anxiety [Unknown]
  - Physical disability [Unknown]
  - Injury [Unknown]
  - Metastases to bone [Unknown]
  - Upper respiratory tract infection [Unknown]
  - Bronchitis [Recovering/Resolving]
  - Chronic obstructive pulmonary disease [Unknown]
  - Cough [Unknown]
  - Emphysema [Unknown]
  - Lymphadenopathy [Unknown]
  - Sinusitis [Unknown]
  - Nasal mucosal disorder [Unknown]
  - Rhinitis [Unknown]
  - Ovarian cyst [Unknown]
  - Endometritis [Unknown]
  - Rectal haemorrhage [Unknown]
  - Haemorrhoids [Unknown]
  - Depression [Unknown]
  - Hot flush [Unknown]
  - Skin lesion [Unknown]
  - Chest pain [Unknown]
  - Bone pain [Unknown]
  - Nephrolithiasis [Unknown]
  - Back pain [Unknown]
  - Spinal osteoarthritis [Unknown]
  - Lung consolidation [Unknown]
  - Atelectasis [Unknown]
  - Hypoxia [Unknown]
  - Pneumonia [Recovered/Resolved]
  - Pleural effusion [Unknown]
  - Bone lesion [Unknown]
  - Osteolysis [Unknown]
  - Nasal oedema [Unknown]
  - Renal cyst [Unknown]
  - Thyroid cyst [Unknown]
  - Breast calcifications [Unknown]
  - Immunodeficiency [Unknown]
  - Thoracic outlet syndrome [Unknown]
  - Sinus headache [Unknown]
  - Osteosclerosis [Unknown]
  - Plasmacytoma [Unknown]
  - Urinary incontinence [Unknown]
  - Pelvic pain [Unknown]
  - Pyelocaliectasis [Unknown]
  - Arteriosclerosis [Unknown]
  - Endometriosis [Unknown]
  - Tendon disorder [Unknown]
  - Foot fracture [Unknown]
  - Tooth disorder [Unknown]
  - Eustachian tube dysfunction [Unknown]
  - Haematoma [Unknown]
  - Pulmonary hypertension [Unknown]
  - Septic shock [Unknown]
  - Renal failure acute [Unknown]
  - Cardiac murmur [Unknown]
  - Coronary artery disease [Unknown]
  - Asthma [Unknown]
  - Cardiac failure congestive [Unknown]
  - Cerebrovascular accident [Unknown]
  - Tachycardia [Unknown]
  - Arthritis [Unknown]
  - Calculus ureteric [Unknown]
  - Renal colic [Unknown]
  - Pelvic fracture [Unknown]
  - Joint injury [Unknown]
  - Joint effusion [Unknown]
  - Perineurial cyst [Unknown]
  - Aortic calcification [Unknown]
  - Hydronephrosis [Unknown]
  - Hyperlipidaemia [Unknown]
  - Seborrhoeic dermatitis [Unknown]
  - Pityriasis alba [Unknown]
  - Tooth loss [Unknown]
  - Bone loss [Unknown]
  - Ovarian cancer [Unknown]
  - Second primary malignancy [Unknown]
  - Periodontal disease [Unknown]
  - Productive cough [Unknown]
  - Purulent discharge [Unknown]
  - Oropharyngeal pain [Unknown]
  - Nasal discomfort [Unknown]
  - Wheezing [Unknown]
  - Paranasal sinus hypersecretion [Unknown]
  - Chest discomfort [Unknown]
  - Nasal congestion [Unknown]
  - Eye disorder [Unknown]
  - Erythema [Unknown]
  - Eye discharge [Unknown]
  - Pharyngeal erythema [Unknown]
  - Sputum discoloured [Unknown]
  - Sepsis [Unknown]
  - Deep vein thrombosis [Unknown]
  - Peripheral swelling [Unknown]
  - Anaemia [Unknown]
  - Loose tooth [Unknown]
  - Dental caries [Unknown]
  - Oral disorder [Unknown]
  - Tooth fracture [Unknown]
  - Haemangioma [Unknown]
  - Haemangioma of bone [Unknown]
  - Vertebral foraminal stenosis [Unknown]
  - Pulmonary fibrosis [Unknown]
  - Exposed bone in jaw [Unknown]
  - Clostridium difficile colitis [Unknown]
  - Escherichia bacteraemia [Unknown]
  - Plasma cell myeloma recurrent [Unknown]
  - Excessive granulation tissue [Unknown]
  - Memory impairment [Unknown]
  - Circumoral oedema [Unknown]
  - Post procedural swelling [Unknown]
  - Discomfort [Unknown]
  - Rib fracture [Unknown]
  - Tendonitis [Unknown]
  - Dyspnoea [Unknown]
  - Hypoaesthesia [Unknown]
  - Pyrexia [Unknown]
  - Musculoskeletal chest pain [Unknown]
  - Ligament sprain [Unknown]
  - Arthralgia [Unknown]
  - Headache [Unknown]
  - Paraesthesia [Unknown]
  - Malaise [Unknown]
  - Abdominal pain [Unknown]
  - Nausea [Unknown]
  - Abasia [Unknown]
  - Pruritus [Unknown]
  - Ear discomfort [Unknown]
  - Musculoskeletal pain [Unknown]
  - Asthenia [Unknown]
  - Fatigue [Unknown]
  - Diarrhoea [Unknown]
  - Hyperhidrosis [Unknown]
  - Constipation [Unknown]
  - Muscle spasms [Unknown]
  - Limb discomfort [Unknown]
  - Proctalgia [Unknown]
